FAERS Safety Report 10626417 (Version 2)
Quarter: 2014Q4

REPORT INFORMATION
  Report Type: Spontaneous
  Country: US (occurrence: US)
  Receive Date: 20141204
  Receipt Date: 20141222
  Transmission Date: 20150529
  Serious: Yes (Death, Hospitalization, Other)
  Sender: FDA-Public Use
  Company Number: US-009507513-1412USA000969

PATIENT
  Age: 46 Year
  Sex: Male

DRUGS (4)
  1. NOXAFIL [Suspect]
     Active Substance: POSACONAZOLE
     Indication: ASPERGILLUS INFECTION
     Dosage: 200MG/5ML, THREE TIMES PER DAY
     Route: 048
     Dates: start: 2009
  2. LACTULOSE. [Concomitant]
     Active Substance: LACTULOSE
     Dosage: UNK
  3. CALCIUM ACETATE. [Concomitant]
     Active Substance: CALCIUM ACETATE
     Dosage: UNK
  4. NOXAFIL [Suspect]
     Active Substance: POSACONAZOLE
     Indication: ASPERGILLUS INFECTION
     Dosage: 100 MG, THREE TABLETS DAILY
     Route: 048

REACTIONS (5)
  - End stage AIDS [Fatal]
  - Respiratory disorder [Fatal]
  - Chronic kidney disease [Fatal]
  - Chronic hepatic failure [Fatal]
  - Hallucination [Unknown]

NARRATIVE: CASE EVENT DATE: 20141115
